FAERS Safety Report 8184701-8 (Version None)
Quarter: 2012Q1

REPORT INFORMATION
  Report Type: 
  Country: None (occurrence: None)
  Receive Date: 20120305
  Receipt Date: 20120305
  Transmission Date: 20120608
  Serious: Yes (Other)
  Sender: FDA-Public Use
  Company Number: None

PATIENT
  Age: 30 Year
  Sex: Female
  Weight: 65.77 kg

DRUGS (1)
  1. NORGESTIMATE AND ETHINYL ESTRADIOL [Suspect]
     Dosage: 1 PER DAY
     Route: 048
     Dates: start: 20120202, end: 20120301

REACTIONS (9)
  - WEIGHT DECREASED [None]
  - DRUG DISPENSING ERROR [None]
  - MUSCLE SPASMS [None]
  - VOMITING [None]
  - PAIN [None]
  - FATIGUE [None]
  - VAGINAL HAEMORRHAGE [None]
  - ABDOMINAL PAIN UPPER [None]
  - NAUSEA [None]
